FAERS Safety Report 8501588-1 (Version None)
Quarter: 2012Q3

REPORT INFORMATION
  Report Type: 
  Country: None (occurrence: None)
  Receive Date: 20120710
  Receipt Date: 20120705
  Transmission Date: 20120928
  Serious: Yes (Life-Threatening)
  Sender: FDA-Public Use
  Company Number: JP-ABBOTT-12P-087-0954577-00

PATIENT
  Age: 69 Year
  Sex: Female

DRUGS (2)
  1. CLARITHROMYCIN [Suspect]
     Indication: PYREXIA
     Route: 048
  2. LOXONIN [Suspect]
     Indication: PYREXIA
     Route: 048

REACTIONS (4)
  - SERUM FERRITIN INCREASED [None]
  - DRUG-INDUCED LIVER INJURY [None]
  - APHTHOUS STOMATITIS [None]
  - LYMPHADENOPATHY [None]
